FAERS Safety Report 19207872 (Version 1)
Quarter: 2021Q2

REPORT INFORMATION
  Report Type: Spontaneous
  Country: US (occurrence: US)
  Receive Date: 20210503
  Receipt Date: 20210503
  Transmission Date: 20210717
  Serious: No
  Sender: FDA-Public Use
  Company Number: US-ABBVIE-20K-163-3707526-00

PATIENT
  Age: 66 Year
  Sex: Male
  Weight: 93.52 kg

DRUGS (1)
  1. CREON [Suspect]
     Active Substance: PANCRELIPASE AMYLASE\PANCRELIPASE LIPASE\PANCRELIPASE PROTEASE
     Indication: PANCREATIC FAILURE
     Dosage: 3 CAPSULES PER MEAL
     Route: 048
     Dates: start: 20201209, end: 20201223

REACTIONS (6)
  - Adverse drug reaction [Unknown]
  - Expired product administered [Unknown]
  - Gastric pH decreased [Unknown]
  - Oropharyngeal pain [Not Recovered/Not Resolved]
  - Haematochezia [Unknown]
  - Throat irritation [Not Recovered/Not Resolved]

NARRATIVE: CASE EVENT DATE: 20201223
